FAERS Safety Report 6310329-8 (Version None)
Quarter: 2009Q3

REPORT INFORMATION
  Report Type: 
  Country: None (occurrence: None)
  Receive Date: 20090814
  Receipt Date: 20090811
  Transmission Date: 20100115
  Serious: No
  Sender: FDA-Public Use
  Company Number: US-B.I. PHARMACEUTICALS,INC./RIDGEFIELD-2009-BP-09555BP

PATIENT
  Age: 77 Year
  Sex: Female

DRUGS (6)
  1. COMBIVENT [Suspect]
     Indication: CHRONIC OBSTRUCTIVE PULMONARY DISEASE
     Dosage: 12 PUF
     Route: 055
     Dates: start: 20030101
  2. ATIVAN [Concomitant]
     Indication: NERVOUSNESS
  3. PAXIL [Concomitant]
     Indication: DEPRESSION
  4. PROTONIX [Concomitant]
     Indication: ULCER
  5. VITAMINS [Concomitant]
     Indication: PROPHYLAXIS
  6. VENTOLIN [Concomitant]
     Indication: CHRONIC OBSTRUCTIVE PULMONARY DISEASE

REACTIONS (1)
  - DYSGEUSIA [None]
